FAERS Safety Report 24667919 (Version 1)
Quarter: 2024Q4

REPORT INFORMATION
  Report Type: Spontaneous
  Country: US (occurrence: US)
  Receive Date: 20241127
  Receipt Date: 20241127
  Transmission Date: 20250115
  Serious: Yes (Hospitalization)
  Sender: NOVO NORDISK
  Company Number: US-NOVOPROD-1321109

PATIENT
  Age: 66 Year
  Sex: Female

DRUGS (1)
  1. WEGOVY [Suspect]
     Active Substance: SEMAGLUTIDE
     Indication: Weight control
     Dosage: 2.4 MG
     Route: 058
     Dates: start: 2024

REACTIONS (4)
  - Diverticulitis [Recovered/Resolved]
  - Nausea [Recovered/Resolved]
  - Gastrointestinal disorder [Unknown]
  - Drug intolerance [Unknown]

NARRATIVE: CASE EVENT DATE: 20240101
